FAERS Safety Report 6074362-6 (Version None)
Quarter: 2009Q1

REPORT INFORMATION
  Report Type: 
  Country: None (occurrence: None)
  Receive Date: 20090211
  Receipt Date: 20090205
  Transmission Date: 20090719
  Serious: Yes (Death)
  Sender: FDA-Public Use
  Company Number: US-PFIZER INC-2009166822

PATIENT
  Sex: Male

DRUGS (3)
  1. LIPITOR [Suspect]
     Dosage: UNK
  2. TRICOR [Suspect]
     Dosage: UNK
  3. NIASPAN [Suspect]
     Dosage: UNK

REACTIONS (1)
  - DEATH [None]
